FAERS Safety Report 16763633 (Version 1)
Quarter: 2019Q3

REPORT INFORMATION
  Report Type: Report from Study
  Country: CA (occurrence: CA)
  Receive Date: 20190902
  Receipt Date: 20190902
  Transmission Date: 20191005
  Serious: Yes (Other)
  Sender: FDA-Public Use
  Company Number: CA-PFIZER INC-2019371381

PATIENT
  Age: 61 Year
  Sex: Female

DRUGS (2)
  1. DETROL [Suspect]
     Active Substance: TOLTERODINE TARTRATE
     Indication: HYPERTONIC BLADDER
     Dosage: UNK
     Route: 065
  2. GILENYA [Interacting]
     Active Substance: FINGOLIMOD HYDROCHLORIDE
     Indication: RELAPSING-REMITTING MULTIPLE SCLEROSIS
     Dosage: 0.5 MG, 1X/DAY
     Route: 048

REACTIONS (6)
  - Visual impairment [Unknown]
  - Drug interaction [Unknown]
  - Pollakiuria [Unknown]
  - Halo vision [Unknown]
  - Migraine [Unknown]
  - Lymphocyte count decreased [Unknown]
